FAERS Safety Report 6037725-0 (Version None)
Quarter: 2009Q1

REPORT INFORMATION
  Report Type: 
  Country: None (occurrence: None)
  Receive Date: 20090113
  Receipt Date: 20090102
  Transmission Date: 20090719
  Serious: Yes (Other)
  Sender: FDA-Public Use
  Company Number: 230094K09USA

PATIENT
  Age: 69 Year
  Sex: Female

DRUGS (5)
  1. REBIF [Suspect]
     Indication: MULTIPLE SCLEROSIS
     Dosage: 44 MCG, 3 IN 1 WEEKS, SUBCUTANEOUS
     Route: 058
     Dates: start: 20030101
  2. FISH OIL(FISH OIL) [Concomitant]
  3. CYMBALTA [Concomitant]
  4. LYRICA [Concomitant]
  5. TYLENOL ARTHRITIS (PARACETAMOL) [Concomitant]

REACTIONS (3)
  - ARTHROPATHY [None]
  - BALANCE DISORDER [None]
  - WALKING AID USER [None]
